FAERS Safety Report 14483015 (Version 3)
Quarter: 2018Q1

REPORT INFORMATION
  Report Type: Spontaneous
  Country: RU (occurrence: RU)
  Receive Date: 20180203
  Receipt Date: 20180316
  Transmission Date: 20180509
  Serious: Yes (Death, Hospitalization, Other)
  Sender: FDA-Public Use
  Company Number: RU-BRISTOL-MYERS SQUIBB COMPANY-BMS-2018-007804

PATIENT
  Age: 51 Year
  Sex: Male

DRUGS (3)
  1. AVASTIN [Suspect]
     Active Substance: BEVACIZUMAB
     Indication: PRODUCT USED FOR UNKNOWN INDICATION
     Dosage: 600 MG, UNK
     Route: 042
  2. OPDIVO [Suspect]
     Active Substance: NIVOLUMAB
     Indication: ANGIOSARCOMA
     Dosage: 240 MG, UNK
     Route: 042
     Dates: start: 2017, end: 20171227
  3. ENOXAPARIN SODIUM. [Suspect]
     Active Substance: ENOXAPARIN SODIUM
     Indication: PRODUCT USED FOR UNKNOWN INDICATION
     Route: 065

REACTIONS (10)
  - Thrombocytopenia [Unknown]
  - Pulmonary embolism [Unknown]
  - Product use in unapproved indication [Unknown]
  - Disseminated intravascular coagulation [Fatal]
  - Haemorrhage [Unknown]
  - Dyspnoea [Unknown]
  - Sputum discoloured [Unknown]
  - Haemoglobin decreased [Unknown]
  - Respiratory failure [Unknown]
  - Pleurisy [Unknown]

NARRATIVE: CASE EVENT DATE: 20180119
